FAERS Safety Report 22645600 (Version 1)
Quarter: 2023Q2

REPORT INFORMATION
  Report Type: Spontaneous
  Country: GB (occurrence: GB)
  Receive Date: 20230627
  Receipt Date: 20230627
  Transmission Date: 20230721
  Serious: Yes (Disabling)
  Sender: FDA-Public Use
  Company Number: None

PATIENT
  Age: 73 Year
  Sex: Female
  Weight: 68 kg

DRUGS (13)
  1. FELODIPINE [Suspect]
     Active Substance: FELODIPINE
     Indication: Product used for unknown indication
     Dosage: 2.5 MILLIGRAM, QD (SWALLOWED WHOLE)
     Route: 065
     Dates: start: 20230310
  2. FLUTICASONE FUROATE [Concomitant]
     Active Substance: FLUTICASONE FUROATE
     Dosage: QD (USE ONE TO TWO SPRAYS IN BOTH NOSTRILS)
     Route: 045
     Dates: start: 20220512
  3. TIOTROPIUM BROMIDE [Concomitant]
     Active Substance: TIOTROPIUM BROMIDE
     Dosage: TIOTROPIUM 10 MICROGRAM PER DOSE EQUIVALENT TO
     Route: 065
     Dates: start: 20220512
  4. CETIRIZINE [Concomitant]
     Active Substance: CETIRIZINE HYDROCHLORIDE
     Dosage: 1 DOSAGE FORM, QD
     Route: 065
     Dates: start: 20220512
  5. CODEINE PHOSPHATE [Concomitant]
     Active Substance: CODEINE PHOSPHATE
     Dosage: TAKE ONE TO TWO TABLETS UPTO FOUR TIMES DAILY F
     Route: 065
     Dates: start: 20220512
  6. Depo medrone [Concomitant]
     Dosage: USED WITH PT LEFT KNEE INFERO/LATERAL APPROACH
     Route: 065
     Dates: start: 20230109, end: 20230110
  7. DOXYCYCLINE [Concomitant]
     Active Substance: DOXYCYCLINE
     Indication: Acute sinusitis
     Dosage: (IF PENICILLIN ALLERGY): TAKE TWO  STRAIGHT AWAY THEN ONE DAILY
     Route: 065
     Dates: start: 20230223, end: 20230228
  8. LANSOPRAZOLE [Concomitant]
     Active Substance: LANSOPRAZOLE
     Dosage: 1 DOSAGE FORM, QD (BEFORE FOOD)
     Route: 065
     Dates: start: 20220512
  9. LIDOCAINE [Concomitant]
     Active Substance: LIDOCAINE
     Dosage: USED WITH PT
     Route: 065
     Dates: start: 20230109, end: 20230110
  10. LOPERAMIDE [Concomitant]
     Active Substance: LOPERAMIDE
     Dosage: AS NECESSARY (TAKE ONE TO TWO CAPSULES WHEN NEEDED FOR LOOSE)
     Route: 065
     Dates: start: 20220512
  11. RAMIPRIL [Concomitant]
     Active Substance: RAMIPRIL
     Dosage: 1 DOSAGE FORM, QD
     Route: 065
     Dates: start: 20220805, end: 20230310
  12. SUMATRIPTAN [Concomitant]
     Active Substance: SUMATRIPTAN
     Indication: Migraine
     Dosage: 1 DOSAGE FORM (TAKE ONE TABLET AT THE ONSET OF MIGRAINE. IF MI
     Route: 065
     Dates: start: 20220512
  13. VENTOLIN [Concomitant]
     Active Substance: ALBUTEROL SULFATE
     Indication: Dyspnoea
     Dosage: 1 DOSAGE FORM AS NECESSARY
     Route: 055
     Dates: start: 20220512

REACTIONS (1)
  - Eye swelling [Recovering/Resolving]
